FAERS Safety Report 14699717 (Version 1)
Quarter: 2018Q1

REPORT INFORMATION
  Report Type: Spontaneous
  Country: US (occurrence: US)
  Receive Date: 20180329
  Receipt Date: 20180329
  Transmission Date: 20180509
  Serious: No
  Sender: FDA-Public Use
  Company Number: None

PATIENT
  Age: 52 Year
  Sex: Female

DRUGS (4)
  1. TRILEPTAL 150MG [Concomitant]
  2. LEVORPHANOL [Suspect]
     Active Substance: LEVORPHANOL
     Indication: OSTEOARTHRITIS
     Route: 048
     Dates: start: 20161031, end: 20180329
  3. COLCRYS [Concomitant]
     Active Substance: COLCHICINE
  4. KLONOPIN 0.5MG [Concomitant]

REACTIONS (5)
  - Blister [None]
  - Asthenia [None]
  - Anxiety [None]
  - Pruritus [None]
  - Hyperhidrosis [None]

NARRATIVE: CASE EVENT DATE: 20180329
